FAERS Safety Report 5469338-3 (Version None)
Quarter: 2007Q3

REPORT INFORMATION
  Report Type: 
  Country: None (occurrence: None)
  Receive Date: 20070927
  Receipt Date: 20070919
  Transmission Date: 20080115
  Serious: Yes (Other)
  Sender: FDA-Public Use
  Company Number: BR-JNJFOC-20070904235

PATIENT
  Age: 7 Year
  Sex: Female
  Weight: 21 kg

DRUGS (1)
  1. MICRONOR [Suspect]
     Indication: ACCIDENTAL EXPOSURE
     Route: 048

REACTIONS (1)
  - ACCIDENTAL EXPOSURE [None]
